FAERS Safety Report 8614478-0 (Version None)
Quarter: 2012Q3

REPORT INFORMATION
  Report Type: 
  Country: None (occurrence: None)
  Receive Date: 20120823
  Receipt Date: 20120813
  Transmission Date: 20120928
  Serious: Yes (Hospitalization, Other)
  Sender: FDA-Public Use
  Company Number: PHHY2012BR071188

PATIENT
  Sex: Female

DRUGS (5)
  1. CALCORT [Suspect]
     Indication: CARDIAC DISORDER
     Dosage: 1 TABLET A DAY
  2. VYTORIN [Suspect]
     Indication: BLOOD CHOLESTEROL
     Dosage: ONCE AFTER DINNER
  3. FORMOTEROL FUMARATE [Suspect]
     Indication: PULMONARY CONGESTION
     Dosage: 12/400MCG 2 TIMES A DAY
     Dates: start: 20040101
  4. HYDROCHLOROTHIAZIDE [Suspect]
     Indication: DIURETIC THERAPY
     Dosage: 1 DF, A DAY
  5. SUSTRATE [Suspect]
     Indication: CARDIAC DISORDER
     Dosage: 1 DF, QD

REACTIONS (7)
  - BLOOD PRESSURE DECREASED [None]
  - PYREXIA [None]
  - INFLUENZA [None]
  - ARTERIAL DISORDER [None]
  - PULMONARY CONGESTION [None]
  - HEADACHE [None]
  - WHEEZING [None]
